FAERS Safety Report 22078219 (Version 1)
Quarter: 2023Q1

REPORT INFORMATION
  Report Type: Spontaneous
  Country: US (occurrence: None)
  Receive Date: 20230308
  Receipt Date: 20230308
  Transmission Date: 20230417
  Serious: No
  Sender: FDA-Public Use
  Company Number: None

PATIENT
  Age: 73 Year
  Sex: Male
  Weight: 113.85 kg

DRUGS (10)
  1. PAXLOVID [Suspect]
     Active Substance: NIRMATRELVIR\RITONAVIR
     Indication: COVID-19
     Dosage: FREQUENCY : TWICE A DAY;?
     Route: 048
  2. TAMSULOSIN [Concomitant]
     Active Substance: TAMSULOSIN
     Dates: start: 20210115
  3. ALLOPURINOL [Concomitant]
     Active Substance: ALLOPURINOL
     Dates: start: 20091216
  4. ATORVASTATIN [Concomitant]
     Active Substance: ATORVASTATIN
     Dates: start: 20130926
  5. DILTIAZEM [Concomitant]
     Active Substance: DILTIAZEM
     Dates: start: 20161116
  6. VICTOZA [Concomitant]
     Active Substance: LIRAGLUTIDE
     Dates: start: 20190816
  7. LOSARTAN [Concomitant]
     Active Substance: LOSARTAN
     Dates: start: 20130926
  8. FINASTERIDE [Concomitant]
     Active Substance: FINASTERIDE
     Dates: start: 20221108
  9. CABERGOLINE [Concomitant]
     Active Substance: CABERGOLINE
     Dates: start: 20221201
  10. LATANOPROST [Concomitant]
     Active Substance: LATANOPROST
     Dates: start: 20150727

REACTIONS (2)
  - Rectal haemorrhage [None]
  - Diarrhoea [None]

NARRATIVE: CASE EVENT DATE: 20230217
